FAERS Safety Report 9931473 (Version 1)
Quarter: 2014Q1

REPORT INFORMATION
  Report Type: Spontaneous
  Country: FR (occurrence: FR)
  Receive Date: 20140228
  Receipt Date: 20140228
  Transmission Date: 20141002
  Serious: Yes (Hospitalization)
  Sender: FDA-Public Use
  Company Number: FR-009507513-1402FRA009179

PATIENT
  Age: 65 Year
  Sex: Male

DRUGS (8)
  1. STROMECTOL [Suspect]
     Indication: SCAB
     Dosage: UNK
     Route: 048
     Dates: start: 201311
  2. SPREGAL [Suspect]
     Indication: SCAB
     Dosage: UNK
     Route: 061
     Dates: start: 201311
  3. KARDEGIC [Suspect]
     Indication: CEREBROVASCULAR ACCIDENT
     Dosage: UNK
     Route: 048
  4. TAHOR [Suspect]
     Indication: HYPERCHOLESTEROLAEMIA
     Dosage: UNK
     Route: 048
  5. EUPANTOL [Suspect]
     Indication: PROPHYLAXIS
     Dosage: UNK
     Route: 048
  6. LYRICA [Suspect]
     Dosage: UNK
     Route: 048
  7. PROCORALAN [Suspect]
     Dosage: UNK
     Route: 048
  8. OXAZEPAM [Suspect]
     Indication: ANXIETY
     Dosage: UNK
     Route: 048

REACTIONS (1)
  - Eczema [Recovering/Resolving]
